FAERS Safety Report 5139645-2 (Version None)
Quarter: 2006Q4

REPORT INFORMATION
  Report Type: 
  Country: None (occurrence: None)
  Receive Date: 20061023
  Receipt Date: 20061009
  Transmission Date: 20070319
  Serious: Yes (Hospitalization)
  Sender: FDA-Public Use
  Company Number: GR200610001352

PATIENT
  Sex: Female
  Weight: 65 kg

DRUGS (6)
  1. TERIPARATIDE [Suspect]
     Indication: OSTEOPOROSIS
     Dosage: 20 UG, DAILY (1/D), SUBCUTANEOUS
     Route: 058
     Dates: start: 20060901
  2. FORTEO PEN                                 (FORTEO PEN) PEN, DISPOSABL [Concomitant]
  3. PREZOLON                  (PREDNISOLONE) [Concomitant]
  4. ADALAT [Concomitant]
  5. KARVEA                        (IRBESARTAN) [Concomitant]
  6. CALCIUM  W/ COLECALCIFEROL                          (CALCIUM, COLECALC [Concomitant]

REACTIONS (4)
  - DYSPHORIA [None]
  - FLUSHING [None]
  - RESPIRATORY DISORDER [None]
  - TACHYCARDIA [None]
